FAERS Safety Report 8206845-4 (Version None)
Quarter: 2012Q1

REPORT INFORMATION
  Report Type: 
  Country: None (occurrence: None)
  Receive Date: 20120312
  Receipt Date: 20120224
  Transmission Date: 20120608
  Serious: Yes (Hospitalization, Other)
  Sender: FDA-Public Use
  Company Number: 2012-0807

PATIENT
  Age: 49 Year
  Sex: Female
  Weight: 56.7 kg

DRUGS (3)
  1. GINGER ROOT (ZINGIBER OFFICINALE RHIZOME) [Concomitant]
  2. DYSPORT [Suspect]
     Indication: SKIN WRINKLING
     Dosage: (SINGLE CYCLE),PARENTERAL
     Route: 051
  3. SPIRULINA (SPIRULINA SPP.) [Concomitant]

REACTIONS (1)
  - BREAST CANCER [None]
